FAERS Safety Report 8642507 (Version 4)
Quarter: 2013Q1

REPORT INFORMATION
  Report Type: Spontaneous
  Country: US (occurrence: US)
  Receive Date: 20120629
  Receipt Date: 20130318
  Transmission Date: 20140127
  Serious: Yes (Hospitalization, Other)
  Sender: FDA-Public Use
  Company Number: US-BIOGENIDEC-2012BI022390

PATIENT
  Sex: Female

DRUGS (2)
  1. TYSABRI [Suspect]
     Indication: MULTIPLE SCLEROSIS
     Route: 042
     Dates: start: 200412, end: 2005
  2. TYSABRI [Suspect]
     Indication: MULTIPLE SCLEROSIS
     Route: 042
     Dates: start: 20061116

REACTIONS (13)
  - Fall [Recovered/Resolved]
  - Non-alcoholic steatohepatitis [Unknown]
  - Oesophageal varices haemorrhage [Recovered/Resolved]
  - General symptom [Unknown]
  - Coeliac disease [Not Recovered/Not Resolved]
  - Upper limb fracture [Unknown]
  - Gastrointestinal haemorrhage [Unknown]
  - Portal hypertension [Unknown]
  - Femur fracture [Recovered/Resolved]
  - Anaemia [Recovered/Resolved]
  - Nausea [Recovered/Resolved]
  - Haematemesis [Recovered/Resolved]
  - Dizziness [Recovered/Resolved]
